FAERS Safety Report 7293906-X (Version None)
Quarter: 2011Q1

REPORT INFORMATION
  Report Type: 
  Country: None (occurrence: None)
  Receive Date: 20110215
  Receipt Date: 20110209
  Transmission Date: 20110831
  Serious: Yes (Hospitalization, Other)
  Sender: FDA-Public Use
  Company Number: US-ABBOTT-11P-163-0704137-00

PATIENT
  Sex: Female

DRUGS (1)
  1. HUMIRA [Suspect]
     Indication: PSORIASIS
     Route: 058
     Dates: start: 20080101, end: 20100201

REACTIONS (6)
  - BLOOD POTASSIUM DECREASED [None]
  - RENAL HAEMORRHAGE [None]
  - RENAL CANCER [None]
  - BLOOD URINE PRESENT [None]
  - WEIGHT DECREASED [None]
  - PSORIASIS [None]
